FAERS Safety Report 20904441 (Version 2)
Quarter: 2022Q2

REPORT INFORMATION
  Report Type: Spontaneous
  Country: US (occurrence: US)
  Receive Date: 20220602
  Receipt Date: 20220628
  Transmission Date: 20220721
  Serious: Yes (Hospitalization, Other)
  Sender: FDA-Public Use
  Company Number: US-009507513-2205USA008572

PATIENT
  Sex: Female

DRUGS (1)
  1. JANUMET [Suspect]
     Active Substance: METFORMIN HYDROCHLORIDE\SITAGLIPTIN PHOSPHATE
     Indication: Diabetes mellitus
     Dosage: PRODUCT QUANTITY REPORTED AS 1; STRENGTH: 50/1000 MG
     Route: 048
     Dates: start: 202111, end: 202205

REACTIONS (4)
  - External ear cellulitis [Unknown]
  - Cellulitis [Unknown]
  - Pruritus [Unknown]
  - Rash [Unknown]
